FAERS Safety Report 4332566-4 (Version None)
Quarter: 2004Q2

REPORT INFORMATION
  Report Type: 
  Country: None (occurrence: None)
  Receive Date: 20040401
  Receipt Date: 20040322
  Transmission Date: 20050107
  Serious: Yes (Other)
  Sender: FDA-Public Use
  Company Number: 200410116BYL

PATIENT
  Age: 72 Year
  Sex: Female
  Weight: 50 kg

DRUGS (7)
  1. ASPIRIN [Suspect]
     Indication: CEREBRAL INFARCTION
     Dosage: 100 MG, QD, ORAL
     Route: 048
     Dates: start: 20031212, end: 20040210
  2. LIPITOR [Concomitant]
  3. BLOPRESS [Concomitant]
  4. GASTER [Concomitant]
  5. ALFAROL [Concomitant]
  6. DOGMATYL [Concomitant]
  7. PERSANTIN [Concomitant]

REACTIONS (1)
  - RETINAL HAEMORRHAGE [None]
